FAERS Safety Report 21886644 (Version 1)
Quarter: 2023Q1

REPORT INFORMATION
  Report Type: Spontaneous
  Country: FR (occurrence: FR)
  Receive Date: 20230119
  Receipt Date: 20230119
  Transmission Date: 20230418
  Serious: Yes (Other)
  Sender: FDA-Public Use
  Company Number: FR-BAXTER-2022BAX026170

PATIENT
  Age: 59 Year
  Sex: Male

DRUGS (3)
  1. DEXAMETHASONE [Suspect]
     Active Substance: DEXAMETHASONE
     Indication: Product used for unknown indication
     Dosage: 20 MILLIGRAM, CYCLE (TREATMENT LINE NUMBER 1)
     Route: 065
     Dates: end: 20180129
  2. BORTEZOMIB [Suspect]
     Active Substance: BORTEZOMIB
     Indication: Product used for unknown indication
     Dosage: 2.5 MILLIGRAM, CYCLE (TREATMENT LINE NUMBER 1)
     Route: 065
     Dates: end: 20180129
  3. CYCLOPHOSPHAMIDE [Suspect]
     Active Substance: CYCLOPHOSPHAMIDE
     Indication: Product used for unknown indication
     Dosage: 1500 MILLIGRAM,CYCLIC (TREATMENT LINE NUMBER 1)
     Route: 065
     Dates: end: 20180129

REACTIONS (4)
  - Haemodynamic instability [Unknown]
  - Contraindication to medical treatment [Unknown]
  - Eschar [Unknown]
  - Inflammation [Unknown]

NARRATIVE: CASE EVENT DATE: 20180129
